FAERS Safety Report 21636624 (Version 1)
Quarter: 2022Q4

REPORT INFORMATION
  Report Type: Spontaneous
  Country: US (occurrence: US)
  Receive Date: 20221124
  Receipt Date: 20221124
  Transmission Date: 20230112
  Serious: Yes (Other)
  Sender: FDA-Public Use
  Company Number: US-SA-2022SA479249

PATIENT
  Age: 64 Year
  Sex: Female
  Weight: 88 kg

DRUGS (11)
  1. CERDELGA [Suspect]
     Active Substance: ELIGLUSTAT
     Indication: Gaucher^s disease
     Dosage: 84 MG, BID
     Route: 048
     Dates: start: 20150718
  2. CERDELGA [Suspect]
     Active Substance: ELIGLUSTAT
     Indication: Lipidosis
  3. HERBALS [Concomitant]
     Active Substance: HERBALS
     Dosage: UNK
  4. ELELYSO [Concomitant]
     Active Substance: TALIGLUCERASE ALFA
     Dosage: UNK
  5. ZINC [Concomitant]
     Active Substance: ZINC
     Dosage: UNK
  6. CHLORELLA [CHLORELLA VULGARIS] [Concomitant]
     Dosage: UNK
  7. CALCIUM\VITAMIN D [Concomitant]
     Active Substance: CALCIUM\VITAMIN D
     Dosage: UNK
  8. VITAMIN C [Concomitant]
     Active Substance: ASCORBIC ACID
     Dosage: UNK
  9. COENZYME Q10 [Concomitant]
     Active Substance: DIETARY SUPPLEMENT\UBIDECARENONE
     Dosage: UNK
  10. VITAMIN D2 [Concomitant]
     Active Substance: ERGOCALCIFEROL
  11. VITAMINS NOS [Concomitant]
     Active Substance: VITAMINS
     Dosage: UNK

REACTIONS (5)
  - Neuropathy peripheral [Unknown]
  - Irritability [Unknown]
  - Swollen tongue [Unknown]
  - Oropharyngeal pain [Unknown]
  - Sluggishness [Unknown]

NARRATIVE: CASE EVENT DATE: 20150701
